FAERS Safety Report 4448836-5 (Version None)
Quarter: 2004Q3

REPORT INFORMATION
  Report Type: 
  Country: None (occurrence: None)
  Receive Date: 20040909
  Receipt Date: 20040824
  Transmission Date: 20050211
  Serious: Yes (Hospitalization, Congenital Anomaly)
  Sender: FDA-Public Use
  Company Number: DSA_24882_2004

PATIENT
  Age: 36 Year
  Sex: Female

DRUGS (10)
  1. ATIVAN [Suspect]
     Dosage: 2 MG QD
     Dates: start: 20031229, end: 20040101
  2. ATIVAN [Suspect]
     Dosage: 1 MG QID
     Dates: start: 20040101
  3. EFFEXOR XR [Suspect]
     Dosage: 450 MG QD
  4. ABILIFY [Suspect]
     Dosage: 20 MG QD
     Dates: start: 20031210, end: 20031229
  5. ABILIFY [Suspect]
     Dosage: 15 MG QD
     Dates: end: 20031210
  6. AMBIEN [Suspect]
     Dosage: 3 MG QD
  7. GABITRIL [Suspect]
     Dosage: 12 MG QD
     Dates: end: 20031229
  8. KLONOPIN [Suspect]
     Dosage: 2 MG QD
     Dates: end: 20031229
  9. REMERON [Suspect]
     Dosage: 45 MG QD
     Dates: end: 20040222
  10. REMERON [Suspect]
     Dosage: 60 MG QD
     Dates: start: 20040223

REACTIONS (5)
  - CAESAREAN SECTION [None]
  - DRUG EXPOSURE DURING PREGNANCY [None]
  - ELECTROCONVULSIVE THERAPY [None]
  - PREGNANCY [None]
  - PREMATURE LABOUR [None]
